FAERS Safety Report 6494037-9 (Version None)
Quarter: 2009Q4

REPORT INFORMATION
  Report Type: 
  Country: None (occurrence: None)
  Receive Date: 20091214
  Receipt Date: 20090115
  Transmission Date: 20100525
  Serious: No
  Sender: FDA-Public Use
  Company Number: US-BRISTOL-MYERS SQUIBB COMPANY-14442057

PATIENT
  Age: 54 Year
  Sex: Male

DRUGS (9)
  1. ABILIFY [Suspect]
     Indication: POST-TRAUMATIC STRESS DISORDER
     Dosage: 5MG TABLET ;1.5 ORAL 9 AM.
     Route: 048
     Dates: start: 20081101, end: 20081213
  2. ABILIFY [Suspect]
     Indication: DEPRESSION
     Dosage: 5MG TABLET ;1.5 ORAL 9 AM.
     Route: 048
     Dates: start: 20081101, end: 20081213
  3. ABILIFY [Suspect]
     Indication: ANXIETY DISORDER
     Dosage: 5MG TABLET ;1.5 ORAL 9 AM.
     Route: 048
     Dates: start: 20081101, end: 20081213
  4. CLONAZEPAM [Concomitant]
     Dosage: 1 MG TID + 4 MG ONCE DAILY.
     Route: 048
  5. LORAZEPAM [Concomitant]
     Dosage: UP TO 8 MG/DAY
  6. CYMBALTA [Concomitant]
     Route: 048
  7. GEODON [Concomitant]
  8. WELLBUTRIN SR [Concomitant]
     Route: 048
  9. MELATONIN [Concomitant]
     Route: 048

REACTIONS (1)
  - DYSPHONIA [None]
